FAERS Safety Report 6019457-8 (Version None)
Quarter: 2008Q4

REPORT INFORMATION
  Report Type: 
  Country: None (occurrence: None)
  Receive Date: 20081224
  Receipt Date: 20081218
  Transmission Date: 20090506
  Serious: Yes (Life-Threatening, Hospitalization)
  Sender: FDA-Public Use
  Company Number: GB-ELI_LILLY_AND_COMPANY-GB200812004605

PATIENT
  Age: 23 Year
  Sex: Female

DRUGS (10)
  1. PROZAC [Suspect]
     Dosage: UNK, UNKNOWN
  2. PROZAC [Suspect]
     Dosage: UNK OVERDOSE, UNKNOWN
     Dates: start: 20080102, end: 20080102
  3. ZOPICLONE [Concomitant]
     Dosage: UNK, UNKNOWN
  4. ZOPICLONE [Concomitant]
     Dosage: UNK, UNKNOWN
     Dates: start: 20080102, end: 20080102
  5. DICLOFENAC SODIUM [Concomitant]
     Dosage: UNK, UNKNOWN
  6. DICLOFENAC SODIUM [Concomitant]
     Dosage: UNK, UNKNOWN
     Dates: start: 20080102, end: 20080102
  7. CITALOPRAM [Concomitant]
     Dosage: UNK, UNKNOWN
  8. CITALOPRAM [Concomitant]
     Dosage: UNK, UNKNOWN
     Dates: start: 20080102, end: 20080102
  9. MIRTAZAPINE [Concomitant]
     Dosage: UNK, UNKNOWN
  10. MIRTAZAPINE [Concomitant]
     Dosage: UNK, UNKNOWN
     Dates: start: 20080102, end: 20080102

REACTIONS (9)
  - ACIDOSIS [None]
  - ACUTE PULMONARY OEDEMA [None]
  - CARDIAC ARREST [None]
  - GLASGOW COMA SCALE ABNORMAL [None]
  - HYPOTHERMIA [None]
  - INTENTIONAL OVERDOSE [None]
  - MULTI-ORGAN FAILURE [None]
  - RESPIRATORY FAILURE [None]
  - VENTRICULAR FIBRILLATION [None]
